FAERS Safety Report 9893948 (Version 5)
Quarter: 2014Q2

REPORT INFORMATION
  Report Type: Report from Study
  Country: GR (occurrence: GR)
  Receive Date: 20140213
  Receipt Date: 20140508
  Transmission Date: 20141212
  Serious: Yes (Life-Threatening, Hospitalization)
  Sender: FDA-Public Use
  Company Number: GR-B.I. PHARMACEUTICALS,INC./RIDGEFIELD-2013-BI-30682II

PATIENT
  Age: 33 Year
  Sex: Female
  Weight: 41 kg

DRUGS (27)
  1. BIBW 2992 [Suspect]
     Indication: METASTATIC GASTRIC CANCER
     Dosage: 40 MG
     Route: 048
     Dates: start: 20130807, end: 20140120
  2. ZOFRAN [Concomitant]
     Indication: PREMEDICATION
     Dosage: 8 MG
     Route: 042
     Dates: start: 20130805, end: 20131202
  3. ZANTAC [Concomitant]
     Indication: PREMEDICATION
     Dosage: 50 MG
     Route: 042
     Dates: start: 20130805, end: 20131202
  4. FENISTIL [Concomitant]
     Indication: PREMEDICATION
     Dosage: 8 MG
     Route: 042
     Dates: start: 20130805, end: 20131202
  5. DEXAMETHASONE [Concomitant]
     Indication: PREMEDICATION
     Dosage: 4 MG
     Route: 042
     Dates: start: 20130805, end: 20131202
  6. N/S [Concomitant]
     Indication: DEHYDRATION
     Dosage: 1000 ML
     Route: 042
     Dates: start: 20130805, end: 20131213
  7. KCL [Concomitant]
     Indication: DEHYDRATION
     Dosage: STRENGTH AND DAILY DOSE: 2
     Route: 042
     Dates: start: 20130805, end: 20131213
  8. MANNITOL 20% [Concomitant]
     Indication: DEHYDRATION
     Dosage: 100 ML
     Route: 042
     Dates: start: 20130805, end: 20130916
  9. PRIMPERAN METOCLOPRAMIDE [Concomitant]
     Indication: VOMITING
     Dosage: 10 MG
     Route: 065
     Dates: end: 20140203
  10. PRIMPERAN METOCLOPRAMIDE [Concomitant]
     Dosage: FORMULATION: INJECTION SOLUTION, STRENGTH: 10 MG PER 2 ML, DOSE: 1/2 X2
     Route: 042
     Dates: start: 20140204, end: 20140214
  11. PRIMPERAN METOCLOPRAMIDE [Concomitant]
     Dosage: 5 MG
     Route: 065
     Dates: start: 20140215
  12. NEXIUM ESOMEPRAZOLE [Concomitant]
     Indication: PROPHYLAXIS
     Dosage: 20 MG
     Route: 065
     Dates: end: 20140203
  13. NEXIUM ESOMEPRAZOLE [Concomitant]
     Dosage: STRENGTH: 40 MG PER VIAL, DOSE: 1 X 1
     Route: 042
     Dates: start: 20140204, end: 20140214
  14. NEXIUM ESOMEPRAZOLE [Concomitant]
     Dosage: 20 MG
     Route: 048
     Dates: start: 20140215
  15. ONDA ONDANSETRON [Concomitant]
     Indication: VOMITING
     Dosage: 8 MG
     Route: 065
     Dates: end: 20131205
  16. SOPA K-POTASSIUM [Concomitant]
     Indication: HYPONATRAEMIA
     Dosage: STRENGTH AND DAILY DOSE: 10CC
     Route: 065
     Dates: start: 20130920, end: 20140203
  17. SOPA K-POTASSIUM [Concomitant]
     Dosage: 10CC
     Route: 065
     Dates: start: 20130919, end: 20130919
  18. SPORANOX ITRACONAZOLE [Concomitant]
     Indication: FUNGAL OESOPHAGITIS
     Dosage: STRENGTH: 10 MG PER ML BOTTLE X 150 ML, DOSE: 10 CC X 2
     Route: 065
     Dates: start: 20131011, end: 20131018
  19. LASIX FUROSEMIDE [Concomitant]
     Indication: PROPHYLAXIS
     Dosage: STRENGTH: 20 MG PER 2 ML, DOSE: EVERY THERAPY
     Route: 042
     Dates: start: 20131014, end: 20131202
  20. ZOMETA ZOLEDRONIC ACID [Concomitant]
     Indication: METASTASES TO BONE
     Dosage: 0.1905 MG
     Route: 042
     Dates: start: 20131104, end: 20140120
  21. KCL+ MGSO4+ PRIMPERAN [Concomitant]
     Indication: PROPHYLAXIS
     Dosage: STRENGTH: 1 +1/2+1, DAILY DOSE: EVERY THERAPY
     Route: 042
     Dates: start: 20131014, end: 20131202
  22. APOTEL PARACETAMOL [Concomitant]
     Indication: PAIN
     Dosage: DAILY DOSE: OCCASSIONALLY ON PAIN
     Route: 042
     Dates: start: 20131231
  23. LAPRAZOL LANSOPRAZOLE [Concomitant]
     Indication: GASTRITIS PROPHYLAXIS
     Dosage: 30 MG
     Route: 065
     Dates: end: 20140203
  24. CISPLATIN [Concomitant]
     Indication: METASTATIC GASTRIC CANCER
     Dosage: 100 MG
     Route: 042
     Dates: start: 20130805, end: 20131104
  25. CISPLATIN [Concomitant]
     Dosage: 70 MG
     Route: 042
     Dates: start: 20131202
  26. FLUOROURACIL [Concomitant]
     Indication: METASTATIC GASTRIC CANCER
     Dosage: 1000 MG
     Route: 042
     Dates: start: 20130805, end: 20131104
  27. FLUOROURACIL [Concomitant]
     Dosage: 750 MG
     Route: 042
     Dates: start: 20131202

REACTIONS (2)
  - Stevens-Johnson syndrome [Not Recovered/Not Resolved]
  - Embolism [Unknown]
